FAERS Safety Report 16947128 (Version 1)
Quarter: 2019Q4

REPORT INFORMATION
  Report Type: Spontaneous
  Country: US (occurrence: US)
  Receive Date: 20191022
  Receipt Date: 20191022
  Transmission Date: 20200122
  Serious: No
  Sender: FDA-Public Use
  Company Number: US-ELI_LILLY_AND_COMPANY-US201909013328

PATIENT
  Sex: Female

DRUGS (6)
  1. HUMULIN R U-500 [Suspect]
     Active Substance: INSULIN HUMAN
     Indication: TYPE 2 DIABETES MELLITUS
     Dosage: 55 U, BID
     Route: 058
  2. HUMULIN R U-500 [Suspect]
     Active Substance: INSULIN HUMAN
     Dosage: 55 U, BID
     Route: 058
  3. HUMULIN R U-500 [Suspect]
     Active Substance: INSULIN HUMAN
     Dosage: 55 U, BID
     Route: 058
  4. EZETIMIBE. [Concomitant]
     Active Substance: EZETIMIBE
     Indication: TYPE 2 DIABETES MELLITUS
     Dosage: 10 MG, UNKNOWN
     Route: 065
  5. METFORMIN [Concomitant]
     Active Substance: METFORMIN HYDROCHLORIDE
     Indication: TYPE 2 DIABETES MELLITUS
     Dosage: 1000 MG, BID
  6. JARDIANCE [Concomitant]
     Active Substance: EMPAGLIFLOZIN
     Indication: PRODUCT USED FOR UNKNOWN INDICATION
     Dosage: 25 MG, UNKNOWN

REACTIONS (12)
  - Hypoaesthesia [Not Recovered/Not Resolved]
  - Confusional state [Recovering/Resolving]
  - Hyperhidrosis [Recovering/Resolving]
  - Pain in extremity [Not Recovered/Not Resolved]
  - Stress [Unknown]
  - Dizziness [Unknown]
  - Haematemesis [Recovered/Resolved]
  - Wrong technique in product usage process [Unknown]
  - Mobility decreased [Unknown]
  - Malaise [Recovered/Resolved]
  - Tremor [Recovering/Resolving]
  - Product dose omission [Unknown]

NARRATIVE: CASE EVENT DATE: 20190924
